FAERS Safety Report 17042459 (Version 1)
Quarter: 2019Q4

REPORT INFORMATION
  Report Type: Spontaneous
  Country: CA (occurrence: CA)
  Receive Date: 20191118
  Receipt Date: 20191118
  Transmission Date: 20200122
  Serious: Yes (Hospitalization, Other)
  Sender: FDA-Public Use
  Company Number: CA-PFIZER INC-2019496518

PATIENT
  Age: 83 Year
  Sex: Male

DRUGS (7)
  1. PANTOPRAZOLE [Suspect]
     Active Substance: PANTOPRAZOLE
     Dosage: 40 MILLIGRAM, BID
     Route: 048
  2. SANDOSTATIN [Suspect]
     Active Substance: OCTREOTIDE ACETATE
     Indication: GASTRECTOMY
     Dosage: 10 MILLIGRAM, MONTHLY
     Route: 030
  3. BISOPROLOL [Concomitant]
     Active Substance: BISOPROLOL
     Dosage: UNK
     Route: 065
  4. FINASTERIDE. [Suspect]
     Active Substance: FINASTERIDE
     Dosage: 5 MILLIGRAM, QD
     Route: 065
  5. SEEBRI BREEZHALER [Suspect]
     Active Substance: GLYCOPYRROLATE
     Dosage: 1 DF, 1X/DAY
     Route: 055
  6. CYANOCOBALAMIN. [Suspect]
     Active Substance: CYANOCOBALAMIN
     Dosage: UNK
     Route: 065
  7. DOMPERIDONE [Concomitant]
     Active Substance: DOMPERIDONE
     Dosage: UNK
     Route: 065

REACTIONS (13)
  - Blood pressure systolic increased [Unknown]
  - Confusional state [Unknown]
  - Saliva altered [Unknown]
  - Asthenia [Unknown]
  - Off label use [Unknown]
  - Product use in unapproved indication [Unknown]
  - Gastrooesophageal reflux disease [Unknown]
  - Abdominal pain upper [Unknown]
  - Cataract [Unknown]
  - Pneumonia [Unknown]
  - Weight increased [Unknown]
  - Angina pectoris [Unknown]
  - Hypotension [Unknown]
